FAERS Safety Report 10350298 (Version 1)
Quarter: 2014Q3

REPORT INFORMATION
  Report Type: Report from Study
  Country: US (occurrence: US)
  Receive Date: 20140730
  Receipt Date: 20140730
  Transmission Date: 20150326
  Serious: No
  Sender: FDA-Public Use
  Company Number: US-ABBVIE-13P-163-1132673-00

PATIENT
  Age: 50 Year
  Sex: Male
  Weight: 83.99 kg

DRUGS (8)
  1. ASA [Concomitant]
     Active Substance: ASPIRIN
     Indication: PRODUCT USED FOR UNKNOWN INDICATION
     Dosage: IN THE MORNING
  2. TRILIPIX [Concomitant]
     Active Substance: FENOFIBRIC ACID
     Indication: PRODUCT USED FOR UNKNOWN INDICATION
  3. NIASPAN [Suspect]
     Active Substance: NIACIN
     Indication: BLOOD CHOLESTEROL INCREASED
     Dosage: AT BEDTIME (DID NOT STOP BUT REDUCED DOSE ON OWN)
  4. NIASPAN [Suspect]
     Active Substance: NIACIN
     Indication: FAMILIAL RISK FACTOR
     Dosage: REDUCED DOSE ON OWN
  5. PLAVIX [Concomitant]
     Active Substance: CLOPIDOGREL BISULFATE
     Indication: PRODUCT USED FOR UNKNOWN INDICATION
  6. SIMVASTATIN. [Concomitant]
     Active Substance: SIMVASTATIN
     Indication: PRODUCT USED FOR UNKNOWN INDICATION
  7. NIASPAN [Suspect]
     Active Substance: NIACIN
  8. METOPROLOL [Concomitant]
     Active Substance: METOPROLOL
     Indication: PRODUCT USED FOR UNKNOWN INDICATION

REACTIONS (5)
  - Tremor [Recovered/Resolved]
  - Headache [Recovered/Resolved]
  - Chest discomfort [Recovered/Resolved]
  - Flushing [Recovered/Resolved]
  - Abdominal pain [Recovered/Resolved]

NARRATIVE: CASE EVENT DATE: 201308
